FAERS Safety Report 19908872 (Version 1)
Quarter: 2021Q4

REPORT INFORMATION
  Report Type: Spontaneous
  Country: US (occurrence: US)
  Receive Date: 20211001
  Receipt Date: 20211001
  Transmission Date: 20220303
  Serious: No
  Sender: FDA-Public Use
  Company Number: US-PFIZER INC-202101212301

PATIENT
  Age: 50 Year
  Sex: Female

DRUGS (1)
  1. EUCRISA [Suspect]
     Active Substance: CRISABOROLE
     Dosage: UNK, 2X/DAY (APPLY 1ST DIGIT ON LEFT FOOT + INNER ANKLE AREA OF RIGHT FOOT TWICE DAILY AS DIRECTED)
     Route: 061

REACTIONS (4)
  - Condition aggravated [Unknown]
  - Pruritus [Unknown]
  - Burning sensation [Unknown]
  - Pain in extremity [Unknown]
